FAERS Safety Report 11359114 (Version 1)
Quarter: 2015Q3

REPORT INFORMATION
  Report Type: Spontaneous
  Country: US (occurrence: US)
  Receive Date: 20150807
  Receipt Date: 20150807
  Transmission Date: 20151125
  Serious: Yes (Death, Hospitalization)
  Sender: FDA-Public Use
  Company Number: US-ACTELION-A-NJ2015-120936

PATIENT
  Age: 53 Year
  Sex: Female

DRUGS (4)
  1. LETAIRIS [Concomitant]
     Active Substance: AMBRISENTAN
  2. TYVASO [Concomitant]
     Active Substance: TREPROSTINIL
  3. ADCIRCA [Concomitant]
     Active Substance: TADALAFIL
  4. VELETRI [Suspect]
     Active Substance: EPOPROSTENOL
     Indication: PULMONARY HYPERTENSION
     Dosage: 8.5 NG/KG, PER MIN
     Route: 042
     Dates: start: 20150608

REACTIONS (7)
  - Dyspnoea [Unknown]
  - Death [Fatal]
  - Haemodialysis [Unknown]
  - Chronic kidney disease [Unknown]
  - Condition aggravated [Unknown]
  - Right ventricular failure [Unknown]
  - Hypotension [Unknown]

NARRATIVE: CASE EVENT DATE: 20150725
